FAERS Safety Report 5731992-6 (Version None)
Quarter: 2008Q2

REPORT INFORMATION
  Report Type: 
  Country: None (occurrence: None)
  Receive Date: 20080506
  Receipt Date: 20080424
  Transmission Date: 20081010
  Serious: Yes (Hospitalization)
  Sender: FDA-Public Use
  Company Number: 2008BI004131

PATIENT
  Age: 49 Year
  Sex: Male

DRUGS (10)
  1. AVONEX [Suspect]
     Indication: MULTIPLE SCLEROSIS
     Dosage: 30 UG; QW; IM
     Route: 030
     Dates: start: 20070106
  2. ACETAMINOPHEN [Concomitant]
  3. PHENYTOIN [Concomitant]
  4. RANITIDINE [Concomitant]
  5. LORAZEPAM [Concomitant]
  6. GABAPENTIN [Concomitant]
  7. MULTI-VITAMIN [Concomitant]
  8. ASCORBIC ACID [Concomitant]
  9. FLOVENT [Concomitant]
  10. ALBUTEROL [Concomitant]

REACTIONS (14)
  - ABDOMINAL PAIN UPPER [None]
  - ASPARTATE AMINOTRANSFERASE INCREASED [None]
  - BLOOD ALKALINE PHOSPHATASE INCREASED [None]
  - CHEST PAIN [None]
  - COLON ADENOMA [None]
  - DIVERTICULUM [None]
  - EMPHYSEMA [None]
  - GAMMA-GLUTAMYLTRANSFERASE INCREASED [None]
  - JAUNDICE [None]
  - LUNG NEOPLASM [None]
  - MUSCLE SPASMS [None]
  - PARAESTHESIA [None]
  - PULMONARY GRANULOMA [None]
  - WEIGHT DECREASED [None]
